FAERS Safety Report 5996826-3 (Version None)
Quarter: 2008Q4

REPORT INFORMATION
  Report Type: 
  Country: None (occurrence: None)
  Receive Date: 20081212
  Receipt Date: 20081027
  Transmission Date: 20090506
  Serious: No
  Sender: FDA-Public Use
  Company Number: US-ABBOTT-08P-163-0484011-00

PATIENT
  Sex: Female

DRUGS (3)
  1. HUMIRA [Suspect]
     Indication: CROHN'S DISEASE
     Dates: start: 20081025
  2. VICODIN [Concomitant]
     Indication: PAIN
  3. PROPACET 100 [Concomitant]
     Indication: PAIN

REACTIONS (1)
  - INCORRECT DOSE ADMINISTERED [None]
